FAERS Safety Report 4301421-8 (Version None)
Quarter: 2004Q1

REPORT INFORMATION
  Report Type: 
  Country: None (occurrence: None)
  Receive Date: 20040219
  Receipt Date: 20040210
  Transmission Date: 20041129
  Serious: Yes (Other)
  Sender: FDA-Public Use
  Company Number: 2004198875GB

PATIENT
  Sex: Male

DRUGS (1)
  1. CAVERJECT [Suspect]
     Indication: ERECTILE DYSFUNCTION
     Dosage: PRN, INT CORP CAVERN
     Route: 011
     Dates: start: 20010101

REACTIONS (4)
  - CYST [None]
  - DEPRESSION [None]
  - HYPERSENSITIVITY [None]
  - PENIS DISORDER [None]
